FAERS Safety Report 9508097 (Version 2)
Quarter: 2013Q4

REPORT INFORMATION
  Report Type: Spontaneous
  Country: FR (occurrence: FR)
  Receive Date: 20130909
  Receipt Date: 20131129
  Transmission Date: 20140711
  Serious: Yes (Hospitalization)
  Sender: FDA-Public Use
  Company Number: FR-SANOFI-AVENTIS-2013SA088749

PATIENT
  Age: 41 Year
  Sex: Female

DRUGS (16)
  1. TAVANIC [Suspect]
     Indication: SINUSITIS
     Route: 042
     Dates: end: 20130717
  2. CEFOTAXIME [Suspect]
     Indication: SINUSITIS
     Route: 042
     Dates: end: 20130717
  3. CORTANCYL [Suspect]
     Indication: IMMUNE THROMBOCYTOPENIC PURPURA
     Dosage: STRENGTH-1MG
     Route: 048
     Dates: start: 20130710, end: 20130715
  4. PRIVIGEN [Suspect]
     Indication: IMMUNE THROMBOCYTOPENIC PURPURA
     Dosage: STRENGTH-10G AND 5 G
     Route: 042
     Dates: start: 20130710, end: 20130715
  5. PRIVIGEN [Suspect]
     Indication: IMMUNE THROMBOCYTOPENIC PURPURA
     Dosage: STRENGTH-10G AND 5 G
     Route: 042
     Dates: start: 20130710, end: 20130715
  6. MACROLIDES [Concomitant]
     Indication: THROMBOCYTOSIS
  7. TRIFLUCAN [Concomitant]
     Indication: VULVOVAGINAL MYCOTIC INFECTION
     Route: 067
  8. CLAFORAN [Concomitant]
  9. IMMUNOGLOBULINS [Concomitant]
     Indication: PYREXIA
  10. IMMUNOGLOBULINS [Concomitant]
     Indication: SINUSITIS
  11. IMMUNOGLOBULINS [Concomitant]
     Indication: TRACHEOBRONCHITIS
  12. CORTICOSTEROID NOS [Concomitant]
     Indication: PYREXIA
  13. CORTICOSTEROID NOS [Concomitant]
     Indication: SINUSITIS
  14. CORTICOSTEROID NOS [Concomitant]
     Indication: TRACHEOBRONCHITIS
  15. CIFLOX [Concomitant]
     Indication: BACK PAIN
  16. CIFLOX [Concomitant]
     Indication: DYSURIA

REACTIONS (2)
  - Thrombocytosis [Recovered/Resolved]
  - Haemolytic anaemia [Recovered/Resolved]
